FAERS Safety Report 22672202 (Version 2)
Quarter: 2025Q2

REPORT INFORMATION
  Report Type: Spontaneous
  Country: US (occurrence: US)
  Receive Date: 20230705
  Receipt Date: 20250517
  Transmission Date: 20250716
  Serious: No
  Sender: AMGEN
  Company Number: US-AMGEN-USASP2023113671

PATIENT
  Age: 43 Year
  Sex: Female

DRUGS (8)
  1. OTEZLA [Suspect]
     Active Substance: APREMILAST
     Indication: Psoriasis
     Dosage: 30 MILLIGRAM, BID
     Route: 048
     Dates: start: 20220126
  2. ALBUTEROL [Concomitant]
     Active Substance: ALBUTEROL
  3. Betameth [Concomitant]
  4. BUPROPION [Concomitant]
     Active Substance: BUPROPION
  5. LAMOTRIGINE [Concomitant]
     Active Substance: LAMOTRIGINE
  6. MONTELUKAST [Concomitant]
     Active Substance: MONTELUKAST
  7. QVAR REDIHALER [Concomitant]
     Active Substance: BECLOMETHASONE DIPROPIONATE
  8. TRELEGY ELLIPTA [Concomitant]
     Active Substance: FLUTICASONE FUROATE\UMECLIDINIUM BROMIDE\VILANTEROL TRIFENATATE

REACTIONS (3)
  - Psoriasis [Recovered/Resolved]
  - Product dose omission issue [Unknown]
  - Discomfort [Recovered/Resolved]

NARRATIVE: CASE EVENT DATE: 20250401
